FAERS Safety Report 20123715 (Version 3)
Quarter: 2022Q4

REPORT INFORMATION
  Report Type: Report from Study
  Country: IE (occurrence: IE)
  Receive Date: 20211129
  Receipt Date: 20221004
  Transmission Date: 20230112
  Serious: Yes (Hospitalization)
  Sender: FDA-Public Use
  Company Number: IE-IPSEN Group, Research and Development-2020-23597

PATIENT
  Age: 58 Year
  Sex: Female

DRUGS (21)
  1. LANREOTIDE ACETATE [Suspect]
     Active Substance: LANREOTIDE ACETATE
     Indication: Neuroendocrine tumour
     Dosage: 120 MG EVERY 2 WEEKS
     Route: 058
     Dates: start: 201901
  2. XANAX [Concomitant]
     Active Substance: ALPRAZOLAM
     Dosage: 250 MG
     Route: 050
  3. XANAX [Concomitant]
     Active Substance: ALPRAZOLAM
     Dosage: 250 MG, ONCE DAILY
     Route: 050
  4. ROSUVASTATIN [Concomitant]
     Active Substance: ROSUVASTATIN
     Dosage: 40 MG ONCE DAILY
     Route: 050
  5. NEXIUM [Concomitant]
     Active Substance: ESOMEPRAZOLE MAGNESIUM
     Dosage: 40 MG ONCE DAILY
     Route: 050
  6. EZETIMIBE [Concomitant]
     Active Substance: EZETIMIBE
     Dosage: 10 MG ONCE DAILY
     Route: 050
  7. NUPRIN [Concomitant]
     Active Substance: IBUPROFEN
     Dosage: 75 MG ONCE DAILY
     Route: 050
  8. SERTRALINE [Concomitant]
     Active Substance: SERTRALINE HYDROCHLORIDE
     Dosage: 50 MG ONCE DAILY
     Route: 050
  9. CREON [Concomitant]
     Active Substance: PANCRELIPASE AMYLASE\PANCRELIPASE LIPASE\PANCRELIPASE PROTEASE
     Dosage: 25000 UNITS TDS
     Route: 050
  10. ONDANSETRON [Concomitant]
     Active Substance: ONDANSETRON
     Dosage: 8 MG, AS PER CHEMO PRESCRIPTION
     Route: 050
  11. CYCLIZINE [Concomitant]
     Active Substance: CYCLIZINE
     Dosage: 50 MG ONCE DAILY
     Route: 050
     Dates: end: 2021
  12. PANADOL [Concomitant]
     Active Substance: ACETAMINOPHEN
     Dosage: 1 GM QDS
     Route: 050
  13. OXYCONTIN [Concomitant]
     Active Substance: OXYCODONE HYDROCHLORIDE
     Dosage: 40 MG BD
     Route: 050
     Dates: end: 2021
  14. OXYCONTIN [Concomitant]
     Active Substance: OXYCODONE HYDROCHLORIDE
     Dosage: 30 MG
     Route: 050
  15. LYRICA [Concomitant]
     Active Substance: PREGABALIN
     Dosage: 75 MG BD
     Route: 050
  16. MAXOLON [Concomitant]
     Active Substance: METOCLOPRAMIDE HYDROCHLORIDE
     Dosage: 10 MG PRN
     Route: 050
  17. LEVOTHYROXINE [Concomitant]
     Active Substance: LEVOTHYROXINE
     Dosage: 50 MCG ONCE DAILY
     Route: 050
  18. QUININE [Concomitant]
     Active Substance: QUININE
     Dosage: 300 MG ONCE DAILY
     Route: 050
  19. MIRTAZAPINE [Concomitant]
     Active Substance: MIRTAZAPINE
     Dosage: 30 MG ONCE DAILY
     Route: 050
  20. DELTACORTRIL [Concomitant]
     Active Substance: PREDNISOLONE
     Dosage: 5 MG ONCE DAILY
     Route: 050
  21. DEXAMETHASONE [Concomitant]
     Active Substance: DEXAMETHASONE
     Dosage: 1 MG, DAILY
     Route: 050
     Dates: end: 202106

REACTIONS (22)
  - Hospitalisation [Unknown]
  - Hospitalisation [Unknown]
  - Pain [Recovering/Resolving]
  - Diarrhoea [Recovering/Resolving]
  - Pyrexia [Recovering/Resolving]
  - Fatigue [Not Recovered/Not Resolved]
  - Decreased appetite [Unknown]
  - Back pain [Unknown]
  - Faeces discoloured [Unknown]
  - Diarrhoea [Unknown]
  - Malaise [Unknown]
  - Pain [Unknown]
  - Abdominal pain lower [Unknown]
  - Injection site mass [Not Recovered/Not Resolved]
  - Injection site pain [Not Recovered/Not Resolved]
  - COVID-19 [Unknown]
  - Anal fissure [Not Recovered/Not Resolved]
  - Off label use [Unknown]
  - Inappropriate schedule of product administration [Unknown]
  - Inappropriate schedule of product administration [Unknown]
  - Inappropriate schedule of product administration [Unknown]
  - Inappropriate schedule of product administration [Unknown]

NARRATIVE: CASE EVENT DATE: 20190101
